FAERS Safety Report 9029447 (Version 2)
Quarter: 2013Q3

REPORT INFORMATION
  Report Type: Report from Study
  Country: CA (occurrence: CA)
  Receive Date: 20130125
  Receipt Date: 20130724
  Transmission Date: 20140515
  Serious: Yes (Death)
  Sender: FDA-Public Use
  Company Number: CA-CELGENEUS-028-22393-13013323

PATIENT
  Sex: Male

DRUGS (3)
  1. ISTODAX [Suspect]
     Indication: PERIPHERAL T-CELL LYMPHOMA UNSPECIFIED
     Route: 041
     Dates: start: 20121031, end: 20121031
  2. ISTODAX [Suspect]
     Indication: MYCOSIS FUNGOIDES
     Route: 065
     Dates: start: 20121107, end: 20121107
  3. ISTODAX [Suspect]
     Route: 065
     Dates: start: 20121114, end: 20121114

REACTIONS (2)
  - Death [Fatal]
  - Wound infection [Unknown]
